FAERS Safety Report 4948819-2 (Version None)
Quarter: 2006Q1

REPORT INFORMATION
  Report Type: 
  Country: None (occurrence: None)
  Receive Date: 20060315
  Receipt Date: 20060307
  Transmission Date: 20060701
  Serious: Yes (Other)
  Sender: FDA-Public Use
  Company Number: 2006033770

PATIENT
  Sex: Female
  Weight: 68.0396 kg

DRUGS (6)
  1. ZYRTEC [Suspect]
     Indication: RHINITIS
     Dosage: DAILY
     Dates: start: 19970101
  2. AMOXICILLIN [Suspect]
     Indication: NASAL CONGESTION
     Dates: start: 20050725, end: 20050101
  3. FLONASE [Concomitant]
  4. FOSAMAX [Concomitant]
  5. ATROVENT [Concomitant]
  6. ALL OTHER THERAPEUTIC PRODUCTS [Concomitant]

REACTIONS (7)
  - ARTHRITIS [None]
  - CONDITION AGGRAVATED [None]
  - DRUG HYPERSENSITIVITY [None]
  - PARAESTHESIA [None]
  - RASH GENERALISED [None]
  - RHINITIS [None]
  - SPINAL COLUMN STENOSIS [None]
